FAERS Safety Report 9555704 (Version 1)
Quarter: 2013Q3

REPORT INFORMATION
  Report Type: Spontaneous
  Country: US (occurrence: None)
  Receive Date: 20130726
  Receipt Date: 20130726
  Transmission Date: 20140515
  Serious: Yes (Hospitalization)
  Sender: FDA-Public Use
  Company Number: UTC-022057

PATIENT
  Age: 45 Year
  Sex: Female
  Weight: 100 kg

DRUGS (3)
  1. REMODULIN [Suspect]
     Indication: PULMONARY ARTERIAL HYPERTENSION
     Dates: start: 20120406
  2. REVATIO (SILDENAFIL CITRATE) (UNKNOWN) (SILDENAFIL) [Concomitant]
     Dosage: 8.64 UG/KG (0.006 UG/KG, 1 IN 1 MIN), SUBCUTANEOUS
     Route: 058
  3. REVATIO (SILDENAFIL CITRATE) [Concomitant]
     Dates: start: 20120406

REACTIONS (1)
  - Pulmonary hypertension [None]
